FAERS Safety Report 13442924 (Version 6)
Quarter: 2018Q4

REPORT INFORMATION
  Report Type: Spontaneous
  Country: US (occurrence: US)
  Receive Date: 20170414
  Receipt Date: 20181005
  Transmission Date: 20190204
  Serious: Yes (Hospitalization, Other)
  Sender: FDA-Public Use
  Company Number: US-TEVA-757576ACC

PATIENT
  Age: 66 Year
  Sex: Female

DRUGS (34)
  1. BACLOFEN. [Concomitant]
     Active Substance: BACLOFEN
     Route: 065
     Dates: start: 20170228, end: 20180219
  2. POLYTH GLYC POW3350 NF [Concomitant]
     Route: 065
     Dates: start: 20180119
  3. TAMIFLU [Concomitant]
     Active Substance: OSELTAMIVIR PHOSPHATE
     Route: 065
     Dates: start: 20180125
  4. HEPARIN [Concomitant]
     Active Substance: HEPARIN SODIUM
  5. COPAXONE [Suspect]
     Active Substance: GLATIRAMER ACETATE
     Indication: MULTIPLE SCLEROSIS
     Route: 058
     Dates: start: 20170120
  6. SERTRALINE [Concomitant]
     Active Substance: SERTRALINE HYDROCHLORIDE
     Route: 065
     Dates: start: 20170228
  7. MORPHINE SUL [Concomitant]
     Active Substance: MORPHINE SULFATE
     Route: 065
     Dates: start: 20180320
  8. METHENAM [Concomitant]
  9. CIPROFLOXACIN. [Concomitant]
     Active Substance: CIPROFLOXACIN
  10. FLUTICASONE  SPR [Concomitant]
     Route: 065
     Dates: start: 20180316
  11. GABAPENTIN. [Concomitant]
     Active Substance: GABAPENTIN
     Route: 065
     Dates: start: 20180320
  12. MORPHINE SUL [Concomitant]
     Active Substance: MORPHINE SULFATE
     Route: 065
     Dates: start: 20180312
  13. MORPHINE SUL [Concomitant]
     Active Substance: MORPHINE SULFATE
     Route: 065
     Dates: start: 20171214
  14. ATORVASTATIN [Concomitant]
     Active Substance: ATORVASTATIN
     Route: 065
     Dates: start: 20180112
  15. METFORMIN [Concomitant]
     Active Substance: METFORMIN HYDROCHLORIDE
     Dates: start: 20170915, end: 20180314
  16. GLIMEPIRIDE. [Concomitant]
     Active Substance: GLIMEPIRIDE
  17. SERTRALINE [Concomitant]
     Active Substance: SERTRALINE HYDROCHLORIDE
     Route: 065
     Dates: start: 20171207
  18. LEVOTHYROXINE. [Concomitant]
     Active Substance: LEVOTHYROXINE
     Route: 065
     Dates: start: 20180420
  19. POLYTH GLYC POW3350 NF [Concomitant]
     Route: 065
     Dates: start: 20180206
  20. OMEPRAZOLE. [Concomitant]
     Active Substance: OMEPRAZOLE
     Route: 065
     Dates: start: 20180108
  21. OMEPRAZOLE. [Concomitant]
     Active Substance: OMEPRAZOLE
     Route: 065
     Dates: start: 20180420
  22. OMEPRAZOLE. [Concomitant]
     Active Substance: OMEPRAZOLE
     Route: 065
     Dates: start: 20180108
  23. DOXYCYCL HYC [Concomitant]
     Route: 065
     Dates: start: 20180316
  24. HYDROCORTISONE. [Concomitant]
     Active Substance: HYDROCORTISONE
     Route: 065
     Dates: start: 20180314
  25. VOLTAREN [Concomitant]
     Active Substance: DICLOFENAC SODIUM
     Route: 065
     Dates: start: 20180314
  26. METFORMIN [Concomitant]
     Active Substance: METFORMIN HYDROCHLORIDE
     Dates: start: 20160420
  27. METFORMIN [Concomitant]
     Active Substance: METFORMIN HYDROCHLORIDE
     Dates: start: 20171214
  28. PROLOIA [Concomitant]
  29. MORPHINE SUL [Concomitant]
     Active Substance: MORPHINE SULFATE
     Route: 065
     Dates: start: 20180112
  30. LISINOPRIL. [Concomitant]
     Active Substance: LISINOPRIL
     Route: 065
     Dates: start: 20171003
  31. BACLOFEN. [Concomitant]
     Active Substance: BACLOFEN
     Route: 065
     Dates: start: 20171114
  32. FLUTICASONE  SPR [Concomitant]
     Route: 065
     Dates: start: 20180314
  33. LEVOTHYROXINE. [Concomitant]
     Active Substance: LEVOTHYROXINE
     Route: 065
     Dates: start: 20170703
  34. GENERLAC [Concomitant]
     Active Substance: LACTULOSE

REACTIONS (9)
  - Fatigue [Recovered/Resolved]
  - Bronchitis [Not Recovered/Not Resolved]
  - Multiple sclerosis relapse [Unknown]
  - Musculoskeletal stiffness [Not Recovered/Not Resolved]
  - Multiple sclerosis relapse [Not Recovered/Not Resolved]
  - Dehydration [Recovered/Resolved]
  - Motor dysfunction [Not Recovered/Not Resolved]
  - Urinary tract infection [Recovered/Resolved]
  - Pyrexia [Not Recovered/Not Resolved]

NARRATIVE: CASE EVENT DATE: 2017
